FAERS Safety Report 5234204-5 (Version None)
Quarter: 2007Q1

REPORT INFORMATION
  Report Type: 
  Country: None (occurrence: None)
  Receive Date: 20070209
  Receipt Date: 20070201
  Transmission Date: 20070707
  Serious: Yes (Other)
  Sender: FDA-Public Use
  Company Number: 2007UW02226

PATIENT
  Age: 44 Year
  Sex: Female
  Weight: 52.2 kg

DRUGS (5)
  1. PULMICORT [Suspect]
     Indication: ASTHMA
     Dosage: 200/6 UG, 2 INHALATIONS BID
     Route: 055
  2. ZINC [Concomitant]
  3. KLONIPEN [Concomitant]
  4. ULTRAM [Concomitant]
  5. PRILOSEC [Concomitant]
     Route: 048

REACTIONS (5)
  - HEADACHE [None]
  - LIVER FUNCTION TEST ABNORMAL [None]
  - MENINGITIS [None]
  - NECK PAIN [None]
  - VOMITING [None]
